FAERS Safety Report 24453695 (Version 2)
Quarter: 2024Q4

REPORT INFORMATION
  Report Type: Report from Study
  Country: US (occurrence: US)
  Receive Date: 20241017
  Receipt Date: 20241018
  Transmission Date: 20250114
  Serious: No
  Sender: ROCHE
  Company Number: US-ROCHE-3308046

PATIENT
  Age: 33 Year
  Sex: Male

DRUGS (2)
  1. RITUXAN [Suspect]
     Active Substance: RITUXIMAB
     Indication: Chronic inflammatory demyelinating polyradiculoneuropathy
     Dosage: DATE OF SERVICE 30/MAR//2023, 07/SEP/2023, 14/SEP/2023, 21/SEP/2023, 28/SEP/2023,01/MAR/2024, 14/MAR
     Route: 042
  2. RITUXAN [Suspect]
     Active Substance: RITUXIMAB
     Dosage: DATE OF TREATMENTS REPORTED ON 07/MAR/2024, 14/MAR/2024, 21/MAR/2024 AND 28/MAR/2024.? FREQUENCY TEX
     Route: 042

REACTIONS (2)
  - Off label use [Unknown]
  - No adverse event [Unknown]
